FAERS Safety Report 4815326-7 (Version None)
Quarter: 2005Q4

REPORT INFORMATION
  Report Type: 
  Country: None (occurrence: None)
  Receive Date: 20051028
  Receipt Date: 20050524
  Transmission Date: 20060501
  Serious: Yes (Hospitalization)
  Sender: FDA-Public Use
  Company Number: US-MERCK-0505USA02925

PATIENT
  Age: 49 Year
  Sex: Male
  Weight: 87 kg

DRUGS (18)
  1. VIOXX [Suspect]
     Indication: BACK INJURY
     Route: 048
     Dates: start: 20001101, end: 20030101
  2. VIOXX [Suspect]
     Route: 048
     Dates: start: 20001101, end: 20030101
  3. VIOXX [Suspect]
     Route: 048
     Dates: start: 20001101, end: 20001229
  4. VIOXX [Suspect]
     Indication: INTERVERTEBRAL DISC PROTRUSION
     Route: 048
     Dates: start: 20001101, end: 20030101
  5. VIOXX [Suspect]
     Route: 048
     Dates: start: 20001101, end: 20030101
  6. VIOXX [Suspect]
     Route: 048
     Dates: start: 20001101, end: 20001229
  7. VASOTEC [Concomitant]
     Indication: HYPERTENSION
     Route: 048
     Dates: start: 19950101
  8. CALAN [Concomitant]
     Indication: HYPERTENSION
     Route: 065
     Dates: start: 19950101
  9. ASPIRIN [Concomitant]
     Indication: PROPHYLAXIS
     Route: 065
     Dates: start: 19950101
  10. LIPITOR [Concomitant]
     Indication: HYPERCHOLESTEROLAEMIA
     Route: 065
     Dates: start: 19990101
  11. ADVIL [Concomitant]
     Indication: PAIN
     Route: 065
     Dates: start: 20000101
  12. ELAVIL [Concomitant]
     Indication: NEURALGIA
     Route: 048
     Dates: start: 20010101, end: 20010201
  13. VICODIN [Concomitant]
     Indication: BACK INJURY
     Route: 065
     Dates: start: 20001201, end: 20010101
  14. ULTRAM [Concomitant]
     Indication: BACK INJURY
     Route: 065
     Dates: start: 20001201, end: 20001201
  15. PREDNISONE [Concomitant]
     Route: 065
     Dates: start: 20001201
  16. FLEXERIL [Concomitant]
     Indication: MYALGIA
     Route: 048
     Dates: start: 20001101, end: 20001101
  17. FLEXERIL [Concomitant]
     Indication: MUSCLE SPASMS
     Route: 048
     Dates: start: 20001101, end: 20001101
  18. ENALAPRIL MALEATE [Concomitant]
     Route: 065

REACTIONS (19)
  - ACCIDENT AT WORK [None]
  - ALCOHOLISM [None]
  - ANXIETY [None]
  - DIZZINESS [None]
  - DRUG INEFFECTIVE [None]
  - DYSPNOEA [None]
  - EMOTIONAL DISTRESS [None]
  - EPISTAXIS [None]
  - FEAR [None]
  - GASTROINTESTINAL HAEMORRHAGE [None]
  - GOUT [None]
  - HEADACHE [None]
  - INSOMNIA [None]
  - INTERVERTEBRAL DISC PROTRUSION [None]
  - LIVER FUNCTION TEST ABNORMAL [None]
  - MYOCARDIAL INFARCTION [None]
  - NEPHROLITHIASIS [None]
  - OCCULT BLOOD POSITIVE [None]
  - TINNITUS [None]
